FAERS Safety Report 15091854 (Version 1)
Quarter: 2018Q2

REPORT INFORMATION
  Report Type: Spontaneous
  Country: US (occurrence: US)
  Receive Date: 20180629
  Receipt Date: 20180629
  Transmission Date: 20180711
  Serious: No
  Sender: FDA-Public Use
  Company Number: US-GALDERMA-US18011822

PATIENT
  Age: 82 Year
  Sex: Male

DRUGS (5)
  1. PROACTIV MD DEEP CLEANSING FACE WASH [Concomitant]
     Active Substance: COSMETICS
     Indication: RASH MACULAR
     Route: 061
     Dates: start: 20180116, end: 201802
  2. PROACTIV SOLUTION DAILY PROTECTION PLUS SUNSCREEN SPF 30 [Suspect]
     Active Substance: AVOBENZONE\HOMOSALATE\OCTINOXATE\OCTISALATE\OXYBENZONE
     Indication: RASH MACULAR
     Route: 061
     Dates: start: 20180116, end: 201802
  3. PROACTIV DEEP CLEANSING WASH [Concomitant]
     Active Substance: SALICYLIC ACID
     Indication: RASH MACULAR
     Route: 061
     Dates: start: 20180116, end: 201802
  4. PROACTIV SOLUTION BLACKHEAD DISSOLVING [Concomitant]
     Active Substance: SALICYLIC ACID
     Indication: RASH MACULAR
     Route: 061
     Dates: start: 20180116, end: 201802
  5. PROACTIV MD ADAPALENE ACNE TREATMENT [Suspect]
     Active Substance: ADAPALENE
     Indication: RASH MACULAR
     Dosage: 0.1%
     Route: 061
     Dates: start: 20180116, end: 201802

REACTIONS (6)
  - Erythema [Recovering/Resolving]
  - Rash pustular [Recovering/Resolving]
  - Product use in unapproved indication [Recovering/Resolving]
  - Inappropriate schedule of drug administration [Recovering/Resolving]
  - Underdose [Recovering/Resolving]
  - Skin irritation [Recovering/Resolving]

NARRATIVE: CASE EVENT DATE: 201801
